FAERS Safety Report 5122737-1 (Version None)
Quarter: 2006Q4

REPORT INFORMATION
  Report Type: 
  Country: None (occurrence: None)
  Receive Date: 20061004
  Receipt Date: 20060918
  Transmission Date: 20070319
  Serious: Yes (Hospitalization, Other)
  Sender: FDA-Public Use
  Company Number: 2006001385

PATIENT
  Age: 76 Year
  Sex: Female

DRUGS (1)
  1. TARCEVA [Suspect]
     Indication: NON-SMALL CELL LUNG CANCER
     Dosage: ORAL
     Route: 048
     Dates: start: 20060615, end: 20060715

REACTIONS (16)
  - ACIDOSIS [None]
  - AMMONIA INCREASED [None]
  - CHOLESTASIS [None]
  - COMA [None]
  - HEPATIC ENCEPHALOPATHY [None]
  - HEPATIC FAILURE [None]
  - HEPATIC NECROSIS [None]
  - HIATUS HERNIA [None]
  - HYPOXIA [None]
  - INTERNATIONAL NORMALISED RATIO INCREASED [None]
  - METASTASIS [None]
  - OXYGEN SATURATION DECREASED [None]
  - PLEURAL EFFUSION [None]
  - PROTEIN TOTAL DECREASED [None]
  - PROTHROMBIN TIME PROLONGED [None]
  - SOFT TISSUE DISORDER [None]
